FAERS Safety Report 24705020 (Version 1)
Quarter: 2024Q4

REPORT INFORMATION
  Report Type: Report from Study
  Country: CA (occurrence: CA)
  Receive Date: 20241206
  Receipt Date: 20241206
  Transmission Date: 20250115
  Serious: Yes (Hospitalization)
  Sender: AMARIN
  Company Number: CA-Amarin Pharma  Inc-2024AMR000577

PATIENT
  Age: 79 Year
  Sex: Male

DRUGS (2)
  1. VASCEPA [Suspect]
     Active Substance: ICOSAPENT ETHYL
     Indication: Cardiovascular event prophylaxis
     Dates: start: 20240829, end: 20241015
  2. CRESTOR [Concomitant]
     Active Substance: ROSUVASTATIN CALCIUM
     Indication: Product used for unknown indication

REACTIONS (2)
  - Neoplasm malignant [Unknown]
  - Bedridden [Unknown]
